FAERS Safety Report 7114073-9 (Version None)
Quarter: 2010Q4

REPORT INFORMATION
  Report Type: 
  Country: None (occurrence: None)
  Receive Date: 20101119
  Receipt Date: 20101115
  Transmission Date: 20110411
  Serious: Yes (Other)
  Sender: FDA-Public Use
  Company Number: US-SANOFI-AVENTIS-2010SA062321

PATIENT
  Age: 53 Year
  Sex: Female
  Weight: 83.46 kg

DRUGS (9)
  1. LANTUS [Suspect]
     Dosage: 10 TO 12 UNITS IN THE MORNING AND THE EVENING
     Route: 058
     Dates: start: 20000101
  2. LANTUS [Suspect]
     Dosage: 16 TO 18 UNITS IN THE MORNING AND THE EVENING
     Route: 058
  3. LANTUS [Suspect]
     Dosage: 12 UNITS IN AM AND 18 UNITS IN PM UNTL 2 WEEKS AGO(4 TH WEEK OF OCT 2010.
     Route: 058
     Dates: end: 20101001
  4. LANTUS [Suspect]
     Dosage: 12 UNITS IN AM AND 10 UNITS IN PM.
     Route: 058
     Dates: start: 20100530
  5. SIMVASTATIN [Concomitant]
     Dates: start: 20071201
  6. MAGNESIUM [Concomitant]
     Dates: start: 20080101
  7. ASPIRIN [Concomitant]
     Indication: PROPHYLAXIS
     Dates: start: 20010101
  8. CALCIUM/VITAMIN D [Concomitant]
  9. FENOFIBRATE [Concomitant]
     Dates: start: 20071201, end: 20101001

REACTIONS (4)
  - BLOOD GLUCOSE DECREASED [None]
  - BLOOD GLUCOSE INCREASED [None]
  - DRUG INEFFECTIVE [None]
  - FOOT FRACTURE [None]
